FAERS Safety Report 24549835 (Version 1)
Quarter: 2024Q4

REPORT INFORMATION
  Report Type: Spontaneous
  Country: US (occurrence: None)
  Receive Date: 20241024
  Receipt Date: 20241024
  Transmission Date: 20250115
  Serious: Yes (Hospitalization)
  Sender: Public
  Company Number: None

PATIENT
  Age: 67 Year
  Sex: Female
  Weight: 92.25 kg

DRUGS (14)
  1. RECLAST [Suspect]
     Active Substance: ZOLEDRONIC ACID
     Indication: Osteoporosis
  2. APIXABAN [Concomitant]
     Active Substance: APIXABAN
  3. ROSUVASTATIN [Concomitant]
     Active Substance: ROSUVASTATIN
  4. ROSUVASTATIN [Concomitant]
     Active Substance: ROSUVASTATIN
  5. QUETIAPINE [Concomitant]
     Active Substance: QUETIAPINE
  6. ATOMOXETINE [Concomitant]
     Active Substance: ATOMOXETINE HYDROCHLORIDE
  7. ASPIRIN [Concomitant]
     Active Substance: ASPIRIN
  8. BUPROPION [Concomitant]
     Active Substance: BUPROPION
  9. VENLAFAXINE [Concomitant]
     Active Substance: VENLAFAXINE HYDROCHLORIDE
  10. B12 [Concomitant]
  11. calcium/citrate [Concomitant]
  12. VITAMINS [Concomitant]
     Active Substance: VITAMINS
  13. VITAMIN D3 [Concomitant]
     Active Substance: CHOLECALCIFEROL
  14. magnesiumw/ashwagandha [Concomitant]

REACTIONS (8)
  - Arthralgia [None]
  - Pain [None]
  - Pyrexia [None]
  - Insomnia [None]
  - Headache [None]
  - Blood pressure abnormal [None]
  - Pulmonary thrombosis [None]
  - Thrombosis [None]

NARRATIVE: CASE EVENT DATE: 20241014
